FAERS Safety Report 8973697 (Version 1)
Quarter: 2012Q4

REPORT INFORMATION
  Report Type: 
  Country: CN (occurrence: CN)
  Receive Date: 20121218
  Receipt Date: 20121218
  Transmission Date: 20130627
  Serious: Yes (Other)
  Sender: FDA-Public Use
  Company Number: PHHY2012CN115931

PATIENT
  Sex: Male
  Weight: 45 kg

DRUGS (1)
  1. SEBIVO [Suspect]
     Indication: CHRONIC HEPATITIS B
     Dosage: 600 mg, QD
     Route: 048
     Dates: start: 20080916, end: 20090929

REACTIONS (7)
  - Oedema peripheral [Recovering/Resolving]
  - Oliguria [Recovering/Resolving]
  - Rhabdomyolysis [Recovering/Resolving]
  - Blood creatine phosphokinase increased [Recovering/Resolving]
  - Pain in extremity [Recovering/Resolving]
  - Gait disturbance [Recovering/Resolving]
  - Alanine aminotransferase increased [Recovering/Resolving]
